FAERS Safety Report 6549014-6 (Version None)
Quarter: 2010Q1

REPORT INFORMATION
  Report Type: 
  Country: None (occurrence: None)
  Receive Date: 20100125
  Receipt Date: 20100121
  Transmission Date: 20100710
  Serious: Yes (Hospitalization)
  Sender: FDA-Public Use
  Company Number: ES-WYE-G05398110

PATIENT
  Age: 1 Year
  Sex: Male

DRUGS (6)
  1. TAZOCEL [Suspect]
     Indication: RESPIRATORY TRACT INFECTION
     Dosage: UNKNOWN
     Route: 042
     Dates: start: 20090616, end: 20090701
  2. PRIMPERAN TAB [Suspect]
     Dosage: UNKNOWN
     Route: 042
     Dates: start: 20090628, end: 20090701
  3. VANCOMYCIN [Suspect]
     Indication: RESPIRATORY TRACT INFECTION
     Dosage: UNKNOWN
     Route: 042
     Dates: start: 20090616, end: 20090706
  4. NOLOTIL /SPA/ [Concomitant]
     Dosage: UNKNOWN
     Route: 042
     Dates: start: 20090627, end: 20090630
  5. OMEPRAZOLE [Suspect]
     Dosage: UNKNOWN
     Route: 042
     Dates: start: 20090629, end: 20090701
  6. SULFAMETHOXAZOLE AND TRIMETHOPRIM [Suspect]
     Indication: RESPIRATORY TRACT INFECTION
     Dosage: UNKNOWN
     Route: 042
     Dates: start: 20090623, end: 20090702

REACTIONS (1)
  - TOXIC SKIN ERUPTION [None]
